FAERS Safety Report 4826692-0 (Version None)
Quarter: 2005Q4

REPORT INFORMATION
  Report Type: 
  Country: None (occurrence: None)
  Receive Date: 20051014
  Receipt Date: 20050804
  Transmission Date: 20060501
  Serious: No
  Sender: FDA-Public Use
  Company Number: 2005SP002239

PATIENT
  Age: 47 Year
  Sex: Female
  Weight: 68.0396 kg

DRUGS (6)
  1. LUNESTA [Suspect]
     Indication: INSOMNIA
     Dosage: 2 MG;HS;ORAL
     Route: 048
     Dates: start: 20050701
  2. ESTRATEST [Concomitant]
  3. CYCLOBENZAPRINE HCL [Concomitant]
  4. TRAMADOL HCL [Concomitant]
  5. PREVACID [Concomitant]
  6. ASPIRIN [Concomitant]

REACTIONS (2)
  - DYSGEUSIA [None]
  - EPISTAXIS [None]
